FAERS Safety Report 18114549 (Version 1)
Quarter: 2020Q3

REPORT INFORMATION
  Report Type: Spontaneous
  Country: IE (occurrence: IE)
  Receive Date: 20200805
  Receipt Date: 20200805
  Transmission Date: 20201103
  Serious: Yes (Other)
  Sender: FDA-Public Use
  Company Number: IE-GLAXOSMITHKLINE-IE2020151275

PATIENT
  Age: 51 Year
  Sex: Female
  Weight: 72 kg

DRUGS (2)
  1. LAMICTAL [Suspect]
     Active Substance: LAMOTRIGINE
     Indication: POST-TRAUMATIC STRESS DISORDER
     Dosage: 100 MG, TID
     Route: 048
     Dates: start: 20151001
  2. LAMICTAL [Suspect]
     Active Substance: LAMOTRIGINE
     Indication: OFF LABEL USE

REACTIONS (4)
  - Confusional state [Not Recovered/Not Resolved]
  - Product substitution issue [Not Recovered/Not Resolved]
  - Somnolence [Not Recovered/Not Resolved]
  - Off label use [Unknown]

NARRATIVE: CASE EVENT DATE: 20200715
